FAERS Safety Report 8339689-3 (Version None)
Quarter: 2012Q2

REPORT INFORMATION
  Report Type: 
  Country: None (occurrence: None)
  Receive Date: 20120507
  Receipt Date: 20120430
  Transmission Date: 20120825
  Serious: Yes (Other)
  Sender: FDA-Public Use
  Company Number: US-SANOFI-AVENTIS-2012SA030208

PATIENT
  Age: 72 Year
  Sex: Male

DRUGS (12)
  1. FLUOROURACIL [Suspect]
     Indication: COLORECTAL CANCER
     Dates: start: 20071201
  2. FOLINIC ACID [Suspect]
     Dates: start: 20080501
  3. ANTINEOPLASTIC AGENTS [Suspect]
     Indication: COLON CANCER METASTATIC
     Dates: start: 20100401
  4. BEVACIZUMAB [Suspect]
     Dates: start: 20080501
  5. IRINOTECAN HCL [Concomitant]
  6. BEVACIZUMAB [Suspect]
     Indication: COLORECTAL CANCER
     Dates: start: 20071201
  7. ELOXATIN [Suspect]
     Indication: COLORECTAL CANCER
     Dates: start: 20071201
  8. FOLINIC ACID [Suspect]
     Indication: COLORECTAL CANCER
     Dates: start: 20071201
  9. CAPECITABINE [Suspect]
     Indication: COLORECTAL CANCER
     Dates: start: 20090501
  10. FOLINIC ACID [Suspect]
  11. FLUOROURACIL [Suspect]
     Dates: start: 20080501
  12. FLUOROURACIL [Suspect]

REACTIONS (6)
  - TOXICITY TO VARIOUS AGENTS [None]
  - DIARRHOEA [None]
  - COLON CANCER [None]
  - DISEASE PROGRESSION [None]
  - WEIGHT DECREASED [None]
  - SKIN TOXICITY [None]
